FAERS Safety Report 7461871-8 (Version None)
Quarter: 2011Q2

REPORT INFORMATION
  Report Type: 
  Country: None (occurrence: None)
  Receive Date: 20110506
  Receipt Date: 20110419
  Transmission Date: 20111010
  Serious: Yes (Hospitalization, Other)
  Sender: FDA-Public Use
  Company Number: US-BAYER-2011-019558

PATIENT
  Age: 29 Year
  Sex: Female
  Weight: 94.331 kg

DRUGS (7)
  1. IBUPROFEN [Concomitant]
     Dosage: 600 MG, UNK
  2. YASMIN [Suspect]
     Dosage: UNK
     Dates: start: 20060801, end: 20060801
  3. BACTROBAN [Concomitant]
     Dosage: UNK
     Dates: start: 20060801
  4. YASMIN [Suspect]
     Indication: CONTRACEPTION
     Dosage: UNK
     Route: 048
     Dates: start: 20060201, end: 20060601
  5. NAPROXEN [Concomitant]
     Dosage: UNK
     Dates: start: 20060801
  6. HYDROCODONE BITARTRATE [Concomitant]
     Indication: PAIN
     Dosage: 5 MG, UNK
     Dates: start: 20061004
  7. PREDNISONE [Concomitant]
     Indication: DERMATITIS CONTACT

REACTIONS (7)
  - DYSPNOEA [None]
  - PULMONARY EMBOLISM [None]
  - PAIN IN EXTREMITY [None]
  - CARDIAC DISORDER [None]
  - RENAL DISORDER [None]
  - DEEP VEIN THROMBOSIS [None]
  - OEDEMA PERIPHERAL [None]
